FAERS Safety Report 9676178 (Version 2)
Quarter: 2013Q4

REPORT INFORMATION
  Report Type: Spontaneous
  Country: DE (occurrence: DE)
  Receive Date: 20131107
  Receipt Date: 20131211
  Transmission Date: 20140711
  Serious: Yes (Hospitalization)
  Sender: FDA-Public Use
  Company Number: DE-EISAI INC-E2007-01379-SPO-DE

PATIENT
  Age: 34 Year
  Sex: Female
  Weight: 70 kg

DRUGS (6)
  1. FYCOMPA (PERAMPANEL) [Suspect]
     Indication: PRODUCT USED FOR UNKNOWN INDICATION
     Dosage: 6 MG DAILY
     Route: 065
  2. FYCOMPA (PERAMPANEL) [Suspect]
     Dosage: 12 MG DAILY
     Route: 065
     Dates: start: 201306
  3. TOPIRAMAT [Concomitant]
     Indication: PRODUCT USED FOR UNKNOWN INDICATION
     Dosage: 100 MG
     Route: 048
     Dates: start: 201311
  4. DANTOMACRIN [Concomitant]
     Indication: MUSCLE SPASTICITY
     Dosage: 50 MG
     Route: 048
  5. PANTOZOL [Concomitant]
     Indication: GASTROOESOPHAGEAL REFLUX DISEASE
     Dosage: 40 MG
     Route: 048
  6. FLOXAL [Concomitant]
     Indication: EYE INFECTION
     Dosage: UNKNOWN

REACTIONS (5)
  - Urinary incontinence [Not Recovered/Not Resolved]
  - Faecal incontinence [Not Recovered/Not Resolved]
  - Gastrooesophageal reflux disease [Recovered/Resolved]
  - Vomiting [Recovered/Resolved]
  - Nausea [Recovered/Resolved]
